FAERS Safety Report 6985879-1 (Version None)
Quarter: 2010Q3

REPORT INFORMATION
  Report Type: 
  Country: None (occurrence: None)
  Receive Date: 20100915
  Receipt Date: 20100902
  Transmission Date: 20110219
  Serious: Yes (Hospitalization)
  Sender: FDA-Public Use
  Company Number: PHHY2010TW54816

PATIENT
  Sex: Female
  Weight: 68 kg

DRUGS (1)
  1. ACLASTA/ZOLEDRONATE T29581+A++OS [Suspect]
     Indication: OSTEOPOROSIS
     Dosage: 5 MG
     Route: 042
     Dates: start: 20100812

REACTIONS (7)
  - BACK PAIN [None]
  - CHILLS [None]
  - HEADACHE [None]
  - LUMBAR VERTEBRAL FRACTURE [None]
  - OSTEOPOROTIC FRACTURE [None]
  - PYREXIA [None]
  - SPINAL COMPRESSION FRACTURE [None]
